FAERS Safety Report 16478012 (Version 6)
Quarter: 2019Q3

REPORT INFORMATION
  Report Type: Report from Study
  Country: CN (occurrence: CN)
  Receive Date: 20190626
  Receipt Date: 20190911
  Transmission Date: 20191004
  Serious: Yes (Hospitalization)
  Sender: FDA-Public Use
  Company Number: CN-ROCHE-2343780

PATIENT
  Age: 49 Year
  Sex: Male
  Weight: 87 kg

DRUGS (8)
  1. TELMISARTAN. [Concomitant]
     Active Substance: TELMISARTAN
     Route: 065
     Dates: start: 20190621, end: 20190628
  2. TANSHINONE IIA SODIUM SULFONATE [Concomitant]
     Route: 065
     Dates: start: 20190620, end: 20190628
  3. ATEZOLIZUMAB. [Suspect]
     Active Substance: ATEZOLIZUMAB
     Indication: LUNG ADENOCARCINOMA STAGE IV
     Dosage: DATE OF MOST RECENT DOSE OF ATEZOLIZUMAB?PRIOR TO AE ONSET 06/JUN/2019
     Route: 042
     Dates: start: 20161104
  4. ASPIRIN [ACETYLSALICYLIC ACID] [Concomitant]
     Active Substance: ASPIRIN
     Route: 065
     Dates: start: 20190621, end: 20190628
  5. NIFEDIPINE. [Concomitant]
     Active Substance: NIFEDIPINE
     Indication: BLOOD PRESSURE DECREASED
     Route: 065
     Dates: start: 20170111
  6. SIMVASTATIN. [Concomitant]
     Active Substance: SIMVASTATIN
     Route: 065
     Dates: start: 20190623, end: 20190628
  7. CREATINE PHOSPHATE SODIUM [Concomitant]
     Active Substance: CREATINE
     Route: 065
     Dates: start: 20190620, end: 20190628
  8. GINKGO BILOBA LEAF EXTRACT [Concomitant]
     Active Substance: GINKGO BILOBA LEAF EXTRACT
     Route: 065
     Dates: start: 20190620, end: 20190626

REACTIONS (1)
  - Cerebrovascular insufficiency [Recovered/Resolved]

NARRATIVE: CASE EVENT DATE: 20190620
